FAERS Safety Report 17017110 (Version 1)
Quarter: 2019Q4

REPORT INFORMATION
  Report Type: Spontaneous
  Country: US (occurrence: US)
  Receive Date: 20191004
  Receipt Date: 20191004
  Transmission Date: 20200122
  Serious: Yes (Other)
  Sender: FDA-Public Use
  Company Number: None

PATIENT
  Age: 17 Year
  Sex: Female
  Weight: 58.97 kg

DRUGS (1)
  1. STIMATE [Suspect]
     Active Substance: DESMOPRESSIN ACETATE
     Indication: VON WILLEBRAND^S DISEASE
     Dosage: ?          OTHER ROUTE:IN ONE NOSTRIL?

REACTIONS (4)
  - Heart rate increased [None]
  - Feeling hot [None]
  - Flushing [None]
  - Feeling cold [None]

NARRATIVE: CASE EVENT DATE: 20191004
